FAERS Safety Report 14072474 (Version 10)
Quarter: 2025Q1

REPORT INFORMATION
  Report Type: Spontaneous
  Country: US (occurrence: US)
  Receive Date: 20171010
  Receipt Date: 20250120
  Transmission Date: 20250408
  Serious: Yes (Other)
  Sender: SANOFI AVENTIS
  Company Number: US-SA-2017SA166051

PATIENT
  Age: 65 Year
  Sex: Female
  Weight: 64.4 kg

DRUGS (7)
  1. DUPIXENT [Suspect]
     Active Substance: DUPILUMAB
     Indication: Dermatitis contact
     Route: 058
     Dates: start: 201708, end: 201708
  2. DUPIXENT [Suspect]
     Active Substance: DUPILUMAB
     Indication: Dermatitis atopic
     Dosage: 300 MG, QOW
     Route: 058
     Dates: start: 201706, end: 202201
  3. DUPIXENT [Suspect]
     Active Substance: DUPILUMAB
     Indication: Asthma
     Dosage: 300 MG, QOW
     Route: 058
     Dates: start: 202202, end: 202212
  4. DUPIXENT [Suspect]
     Active Substance: DUPILUMAB
     Dosage: 300 MG, Q3W
     Route: 058
     Dates: start: 20241228
  5. KENALOG [Concomitant]
     Active Substance: TRIAMCINOLONE ACETONIDE
     Indication: Alopecia
  6. PREDNISONE [Concomitant]
     Active Substance: PREDNISONE
  7. ROSUVASTATIN CALCIUM [Concomitant]
     Active Substance: ROSUVASTATIN CALCIUM

REACTIONS (33)
  - Cataract [Unknown]
  - Blindness unilateral [Recovered/Resolved]
  - Herpes ophthalmic [Unknown]
  - Myalgia [Unknown]
  - Lip swelling [Recovered/Resolved]
  - Ocular hyperaemia [Unknown]
  - Swelling of eyelid [Unknown]
  - Vision blurred [Unknown]
  - Thyroid disorder [Unknown]
  - Eye swelling [Not Recovered/Not Resolved]
  - Eye pain [Not Recovered/Not Resolved]
  - Alopecia [Not Recovered/Not Resolved]
  - Eye discharge [Unknown]
  - Skin wrinkling [Unknown]
  - Pain in jaw [Unknown]
  - Gingival swelling [Unknown]
  - Inflammation [Unknown]
  - Visual impairment [Unknown]
  - Skin ulcer [Unknown]
  - Pain [Unknown]
  - Photophobia [Unknown]
  - Asthenopia [Unknown]
  - Vitamin B12 decreased [Unknown]
  - Eyelid scar [Not Recovered/Not Resolved]
  - Bone pain [Unknown]
  - Vision blurred [Not Recovered/Not Resolved]
  - Arthralgia [Unknown]
  - Eye pruritus [Not Recovered/Not Resolved]
  - Conjunctivitis [Unknown]
  - Dry eye [Unknown]
  - Blepharitis [Unknown]
  - Product use in unapproved indication [Unknown]
  - Off label use [Unknown]

NARRATIVE: CASE EVENT DATE: 20170101
